FAERS Safety Report 18130139 (Version 1)
Quarter: 2020Q3

REPORT INFORMATION
  Report Type: Spontaneous
  Country: US (occurrence: US)
  Receive Date: 20200810
  Receipt Date: 20200810
  Transmission Date: 20201103
  Serious: Yes (Life-Threatening, Hospitalization)
  Sender: FDA-Public Use
  Company Number: None

PATIENT
  Age: 81 Year
  Sex: Female
  Weight: 63 kg

DRUGS (2)
  1. BACTRIM [Suspect]
     Active Substance: SULFAMETHOXAZOLE\TRIMETHOPRIM
     Indication: ANTIBIOTIC PROPHYLAXIS
     Dosage: ?          QUANTITY:1 TABLET(S);?
     Route: 048
     Dates: start: 20200801
  2. XARELTO [Concomitant]
     Active Substance: RIVAROXABAN

REACTIONS (11)
  - Confusional state [None]
  - Hypopnoea [None]
  - Somnolence [None]
  - Vomiting [None]
  - Unresponsive to stimuli [None]
  - Gait disturbance [None]
  - Drug hypersensitivity [None]
  - Memory impairment [None]
  - Poverty of speech [None]
  - Sepsis syndrome [None]
  - Fatigue [None]

NARRATIVE: CASE EVENT DATE: 20200801
